FAERS Safety Report 12535787 (Version 1)
Quarter: 2016Q3

REPORT INFORMATION
  Report Type: Spontaneous
  Country: FR (occurrence: FR)
  Receive Date: 20160707
  Receipt Date: 20160707
  Transmission Date: 20161109
  Serious: Yes (Hospitalization)
  Sender: FDA-Public Use
  Company Number: FR-ROCHE-1789332

PATIENT
  Age: 49 Year
  Sex: Male

DRUGS (11)
  1. TERCIAN [Suspect]
     Active Substance: CYAMEMAZINE
     Indication: AGITATION
     Route: 048
     Dates: start: 20160402, end: 20160406
  2. THERALENE (FRANCE) [Suspect]
     Active Substance: TRIMEPRAZINE
     Indication: PRODUCT USED FOR UNKNOWN INDICATION
     Route: 048
  3. THERALENE (FRANCE) [Suspect]
     Active Substance: TRIMEPRAZINE
     Route: 048
     Dates: start: 20160406
  4. AEQUASYAL [Concomitant]
     Active Substance: CORN OIL, OXIDIZED
  5. RISPERIDONE. [Concomitant]
     Active Substance: RISPERIDONE
     Route: 065
  6. VALIUM [Suspect]
     Active Substance: DIAZEPAM
     Indication: PRODUCT USED FOR UNKNOWN INDICATION
     Route: 048
     Dates: end: 20160406
  7. LEPTICUR [Concomitant]
     Active Substance: TROPATEPINE HYDROCHLORIDE
     Route: 065
  8. DEROXAT [Concomitant]
     Active Substance: PAROXETINE HYDROCHLORIDE
     Route: 065
  9. CEFOTAXIME [Suspect]
     Active Substance: CEFOTAXIME SODIUM
     Indication: PRODUCT USED FOR UNKNOWN INDICATION
     Route: 042
     Dates: start: 20160402, end: 20160417
  10. IMOVANE [Suspect]
     Active Substance: ZOPICLONE
     Indication: PRODUCT USED FOR UNKNOWN INDICATION
     Route: 048
     Dates: end: 20160406
  11. LOVENOX [Concomitant]
     Active Substance: ENOXAPARIN SODIUM
     Indication: PULMONARY EMBOLISM

REACTIONS (1)
  - Encephalopathy [Recovered/Resolved]

NARRATIVE: CASE EVENT DATE: 20160406
